FAERS Safety Report 21758242 (Version 1)
Quarter: 2022Q4

REPORT INFORMATION
  Report Type: Spontaneous
  Country: US (occurrence: US)
  Receive Date: 20221221
  Receipt Date: 20221221
  Transmission Date: 20230113
  Serious: Yes (Hospitalization)
  Sender: FDA-Public Use
  Company Number: US-BIOVITRUM-2022US14968

PATIENT
  Sex: Male

DRUGS (1)
  1. SYNAGIS [Suspect]
     Active Substance: PALIVIZUMAB
     Indication: Product used for unknown indication
     Dates: start: 20221118

REACTIONS (5)
  - Nasal congestion [Unknown]
  - Cough [Unknown]
  - Diarrhoea [Unknown]
  - Vomiting [Unknown]
  - Drug hypersensitivity [Unknown]
